FAERS Safety Report 11455120 (Version 6)
Quarter: 2016Q1

REPORT INFORMATION
  Report Type: Spontaneous
  Country: US (occurrence: US)
  Receive Date: 20150903
  Receipt Date: 20160317
  Transmission Date: 20160525
  Serious: No
  Sender: FDA-Public Use
  Company Number: US-ACTELION PHARMACEUTICALS US, INC.-A-NJ2015-118549

PATIENT
  Age: 39 Year
  Sex: Female

DRUGS (7)
  1. REMERON [Suspect]
     Active Substance: MIRTAZAPINE
     Dosage: 10 MG, QD
     Route: 065
  2. CLONAZEPAM. [Suspect]
     Active Substance: CLONAZEPAM
     Indication: PRODUCT USED FOR UNKNOWN INDICATION
     Route: 065
  3. LEXAPRO [Suspect]
     Active Substance: ESCITALOPRAM OXALATE
     Indication: PRODUCT USED FOR UNKNOWN INDICATION
     Dosage: 20 MG, UNK
     Route: 065
  4. SILDENAFIL. [Concomitant]
     Active Substance: SILDENAFIL
     Indication: PULMONARY ARTERIAL HYPERTENSION
  5. TRACLEER [Suspect]
     Active Substance: BOSENTAN
     Indication: PULMONARY ARTERIAL HYPERTENSION
     Dosage: UNK
     Route: 048
     Dates: start: 20060727
  6. REMERON [Suspect]
     Active Substance: MIRTAZAPINE
     Indication: DEPRESSION
     Dosage: 7.5 MG, QD
     Route: 065
  7. LEXAPRO [Suspect]
     Active Substance: ESCITALOPRAM OXALATE
     Dosage: 10 MG, UNK
     Route: 065
     Dates: start: 201508

REACTIONS (15)
  - Acne [Unknown]
  - Burning sensation [Unknown]
  - Paraesthesia oral [Unknown]
  - Somnolence [Unknown]
  - Abdominal discomfort [Unknown]
  - Gastric ulcer [Unknown]
  - Depression [Unknown]
  - Insomnia [Unknown]
  - Chest discomfort [Unknown]
  - Hypoaesthesia [Unknown]
  - Fatigue [Unknown]
  - Oral candidiasis [Unknown]
  - Neuralgia [Unknown]
  - Anxiety [Unknown]
  - Weight decreased [Unknown]

NARRATIVE: CASE EVENT DATE: 201601
